APPROVED DRUG PRODUCT: PANTOPRAZOLE SODIUM
Active Ingredient: PANTOPRAZOLE SODIUM
Strength: EQ 40MG BASE
Dosage Form/Route: TABLET, DELAYED RELEASE;ORAL
Application: A200821 | Product #002
Applicant: MACLEODS PHARMACEUTICALS LTD
Approved: Feb 16, 2012 | RLD: No | RS: No | Type: DISCN